FAERS Safety Report 24868874 (Version 1)
Quarter: 2025Q1

REPORT INFORMATION
  Report Type: Spontaneous
  Country: CH (occurrence: CH)
  Receive Date: 20250121
  Receipt Date: 20250121
  Transmission Date: 20250409
  Serious: Yes (Hospitalization)
  Sender: ALEXION PHARMACEUTICALS
  Company Number: CH-SA-2024SA381914

PATIENT
  Age: 2 Month

DRUGS (2)
  1. NIRSEVIMAB [Suspect]
     Active Substance: NIRSEVIMAB
     Route: 065
  2. NIRSEVIMAB [Suspect]
     Active Substance: NIRSEVIMAB

REACTIONS (4)
  - Therapy non-responder [Unknown]
  - Respiratory syncytial virus infection [Unknown]
  - Therapeutic response decreased [Unknown]
  - Drug ineffective [Unknown]
